FAERS Safety Report 19034304 (Version 20)
Quarter: 2022Q3

REPORT INFORMATION
  Report Type: Report from Study
  Country: US (occurrence: US)
  Receive Date: 20210319
  Receipt Date: 20220817
  Transmission Date: 20221027
  Serious: Yes (Other)
  Sender: FDA-Public Use
  Company Number: US-GLAXOSMITHKLINE-US2021AMR037376

PATIENT

DRUGS (1)
  1. BELANTAMAB MAFODOTIN [Suspect]
     Active Substance: BELANTAMAB MAFODOTIN
     Indication: Plasma cell myeloma
     Dosage: 145 MG, Z, TOTAL OF 5 DOSES
     Route: 042
     Dates: start: 20210119

REACTIONS (9)
  - Punctate keratitis [Unknown]
  - Keratopathy [Recovering/Resolving]
  - Visual acuity reduced [Recovering/Resolving]
  - Night blindness [Recovering/Resolving]
  - Photophobia [Recovering/Resolving]
  - Eye disorder [Recovering/Resolving]
  - Corneal defect [Recovering/Resolving]
  - Keratitis [Recovering/Resolving]
  - Dry eye [Unknown]

NARRATIVE: CASE EVENT DATE: 20210101
